FAERS Safety Report 11427938 (Version 1)
Quarter: 2015Q3

REPORT INFORMATION
  Report Type: Spontaneous
  Country: US (occurrence: None)
  Receive Date: 20150827
  Receipt Date: 20150827
  Transmission Date: 20151125
  Serious: No
  Sender: FDA-Public Use
  Company Number: None

PATIENT
  Age: 7 Year
  Sex: Female

DRUGS (7)
  1. ZENPEP [Concomitant]
     Active Substance: PANCRELIPASE\PANCRELIPASE AMYLASE\PANCRELIPASE LIPASE\PANCRELIPASE PROTEASE
  2. FLUTICASONE [Concomitant]
     Active Substance: FLUTICASONE\FLUTICASONE PROPIONATE
  3. PULMOZYME [Suspect]
     Active Substance: DORNASE ALFA
     Dates: start: 20140321, end: 20140421
  4. TOBI [Suspect]
     Active Substance: TOBRAMYCIN
     Indication: CYSTIC FIBROSIS
     Dates: start: 20150102, end: 20150202
  5. ALBUTEROL. [Concomitant]
     Active Substance: ALBUTEROL
  6. PREVACID [Concomitant]
     Active Substance: LANSOPRAZOLE
  7. SODIUM CHI [Concomitant]

REACTIONS (2)
  - Unevaluable event [None]
  - Pneumothorax [None]

NARRATIVE: CASE EVENT DATE: 20150821
